FAERS Safety Report 9472178 (Version 1)
Quarter: 2013Q3

REPORT INFORMATION
  Report Type: Spontaneous
  Country: US (occurrence: None)
  Receive Date: 20130821
  Receipt Date: 20130821
  Transmission Date: 20140515
  Serious: No
  Sender: FDA-Public Use
  Company Number: None

PATIENT
  Age: 40 Year
  Sex: Female

DRUGS (1)
  1. ZIPRASIDONE [Suspect]
     Route: 048
     Dates: start: 20130816

REACTIONS (3)
  - Drug prescribing error [None]
  - Incorrect dose administered [None]
  - Adverse reaction [None]
